FAERS Safety Report 25931863 (Version 1)
Quarter: 2025Q4

REPORT INFORMATION
  Report Type: Spontaneous
  Country: US (occurrence: US)
  Receive Date: 20251016
  Receipt Date: 20251016
  Transmission Date: 20260117
  Serious: No
  Sender: MYLAN
  Company Number: US-MYLANLABS-2025M1085669

PATIENT
  Sex: Female
  Weight: 68 kg

DRUGS (8)
  1. ESTRADIOL TRANSDERMAL SYSTEM [Suspect]
     Active Substance: ESTRADIOL
     Indication: Oestrogen replacement therapy
     Dosage: 0.05 MILLIGRAM, QD (PER DAY, ONCE WEEKLY)
     Dates: start: 2025
  2. ESTRADIOL TRANSDERMAL SYSTEM [Suspect]
     Active Substance: ESTRADIOL
     Dosage: 0.05 MILLIGRAM, QD (PER DAY, ONCE WEEKLY)
     Route: 062
     Dates: start: 2025
  3. ESTRADIOL TRANSDERMAL SYSTEM [Suspect]
     Active Substance: ESTRADIOL
     Dosage: 0.05 MILLIGRAM, QD (PER DAY, ONCE WEEKLY)
     Route: 062
     Dates: start: 2025
  4. ESTRADIOL TRANSDERMAL SYSTEM [Suspect]
     Active Substance: ESTRADIOL
     Dosage: 0.05 MILLIGRAM, QD (PER DAY, ONCE WEEKLY)
     Dates: start: 2025
  5. ESTRADIOL TRANSDERMAL SYSTEM [Suspect]
     Active Substance: ESTRADIOL
     Indication: Oestrogen replacement therapy
     Dosage: 0.075 MILLIGRAM, QD (PER DAY, ONCE WEEKLY)
     Dates: start: 2025
  6. ESTRADIOL TRANSDERMAL SYSTEM [Suspect]
     Active Substance: ESTRADIOL
     Dosage: 0.075 MILLIGRAM, QD (PER DAY, ONCE WEEKLY)
     Route: 062
     Dates: start: 2025
  7. ESTRADIOL TRANSDERMAL SYSTEM [Suspect]
     Active Substance: ESTRADIOL
     Dosage: 0.075 MILLIGRAM, QD (PER DAY, ONCE WEEKLY)
     Route: 062
     Dates: start: 2025
  8. ESTRADIOL TRANSDERMAL SYSTEM [Suspect]
     Active Substance: ESTRADIOL
     Dosage: 0.075 MILLIGRAM, QD (PER DAY, ONCE WEEKLY)
     Dates: start: 2025

REACTIONS (3)
  - Application site burn [Unknown]
  - Application site swelling [Unknown]
  - Product adhesion issue [Unknown]

NARRATIVE: CASE EVENT DATE: 20250101
